FAERS Safety Report 5357153-0 (Version None)
Quarter: 2007Q2

REPORT INFORMATION
  Report Type: 
  Country: None (occurrence: None)
  Receive Date: 20070612
  Receipt Date: 20070530
  Transmission Date: 20071010
  Serious: Yes (Hospitalization)
  Sender: FDA-Public Use
  Company Number: CIP07001011

PATIENT
  Age: 54 Year
  Sex: Female

DRUGS (7)
  1. RISEDRONATE SODIUM [Suspect]
     Indication: OSTEOPOROSIS
     Dosage: 2.5 MG DAILY, ORAL
     Route: 048
     Dates: start: 20070109, end: 20070315
  2. PELETON            (ZALTOPROFEN) [Concomitant]
  3. NATEGLINIDE [Concomitant]
  4. AMARYL [Concomitant]
  5. NEOPHAGEN-1 (AMINOACETIC ACID, CALCIUM CARBONATE, DL-METHIONINE, GLYCY [Concomitant]
  6. MOHRUS                   (KETOPROFEN) [Concomitant]
  7. NEO VITACAIN (CINCHOCAINE HYDROCHLORIDE, CALCIUM PANTOTHENATE, CALCIUM [Concomitant]

REACTIONS (3)
  - CONDITION AGGRAVATED [None]
  - DIABETES MELLITUS [None]
  - TREATMENT NONCOMPLIANCE [None]
